FAERS Safety Report 22625894 (Version 1)
Quarter: 2023Q2

REPORT INFORMATION
  Report Type: Spontaneous
  Country: US (occurrence: None)
  Receive Date: 20230619
  Receipt Date: 20230619
  Transmission Date: 20230722
  Serious: No
  Sender: FDA-Public Use
  Company Number: None

PATIENT
  Sex: Male

DRUGS (19)
  1. ABIRATERONE [Suspect]
     Active Substance: ABIRATERONE
     Indication: Prostate cancer
     Dosage: FREQUENCY : DAILY;?
     Route: 048
  2. AMLODIPINE [Concomitant]
  3. ASTEPRO [Concomitant]
     Active Substance: AZELASTINE HYDROCHLORIDE
  4. BIOTIN [Concomitant]
     Active Substance: BIOTIN
  5. CALCIUM [Concomitant]
  6. GEMTESA [Concomitant]
     Active Substance: VIBEGRON
  7. LISINOPRIL [Concomitant]
  8. LUPRON [Concomitant]
     Active Substance: LEUPROLIDE ACETATE
  9. OMEPRAZOLE [Concomitant]
  10. OXYBUTYNIN [Concomitant]
     Active Substance: OXYBUTYNIN
  11. PANTROPRAZOLE [Concomitant]
  12. POTASSIUM [Concomitant]
     Active Substance: POTASSIUM
  13. PRAVASTATIN [Concomitant]
  14. PREDNISONE [Concomitant]
     Active Substance: PREDNISONE
  15. PROLIA [Concomitant]
     Active Substance: DENOSUMAB
  16. VITAMIN C [Concomitant]
  17. VITAMIN D3 [Concomitant]
  18. VITAMIN E [Concomitant]
     Active Substance: .ALPHA.-TOCOPHEROL
  19. ZINC [Concomitant]
     Active Substance: ZINC

REACTIONS (2)
  - Fatigue [None]
  - Red blood cell count decreased [None]
